FAERS Safety Report 18697001 (Version 14)
Quarter: 2021Q4

REPORT INFORMATION
  Report Type: Report from Study
  Country: JP (occurrence: JP)
  Receive Date: 20210104
  Receipt Date: 20211230
  Transmission Date: 20220303
  Serious: Yes (Hospitalization, Other)
  Sender: FDA-Public Use
  Company Number: JP-ONO-2020JP031839

PATIENT
  Age: 71 Year
  Sex: Female
  Weight: 36 kg

DRUGS (6)
  1. BRAFTOVI [Suspect]
     Active Substance: ENCORAFENIB
     Indication: Malignant melanoma
     Dosage: 450 MG, EVERYDAY
     Route: 048
     Dates: start: 20200904, end: 20210329
  2. MEKTOVI [Suspect]
     Active Substance: BINIMETINIB
     Indication: Malignant melanoma
     Dosage: 90 MG, EVERYDAY
     Route: 048
     Dates: start: 20200904, end: 20210329
  3. OPDIVO [Suspect]
     Active Substance: NIVOLUMAB
     Indication: Malignant melanoma
     Dosage: UNK
     Route: 041
     Dates: start: 201811, end: 20191121
  4. OPDIVO [Suspect]
     Active Substance: NIVOLUMAB
     Dosage: 80 MG
     Route: 041
     Dates: start: 202006, end: 20200625
  5. YERVOY [Suspect]
     Active Substance: IPILIMUMAB
     Indication: Malignant melanoma
     Dosage: 3 MG/KG
     Route: 041
     Dates: start: 202006, end: 20200625
  6. PREDONINE [Concomitant]
     Active Substance: PREDNISOLONE
     Indication: Pemphigoid
     Dosage: 10 MG, EVERYDAY
     Route: 042

REACTIONS (6)
  - Hypoalbuminaemia [Recovering/Resolving]
  - Colitis ulcerative [Recovering/Resolving]
  - Ascites [Recovering/Resolving]
  - Anaemia [Recovering/Resolving]
  - Generalised oedema [Recovering/Resolving]
  - Pleural effusion [Recovering/Resolving]

NARRATIVE: CASE EVENT DATE: 20201101
